FAERS Safety Report 10729353 (Version 1)
Quarter: 2015Q1

REPORT INFORMATION
  Report Type: Other
  Country: FR (occurrence: FR)
  Receive Date: 20150122
  Receipt Date: 20150122
  Transmission Date: 20150721
  Serious: Yes (Life-Threatening, Other)
  Sender: FDA-Public Use
  Company Number: FR-ASTELLAS-2015US001984

PATIENT
  Age: 59 Year
  Sex: Female

DRUGS (1)
  1. ERLOTINIB [Suspect]
     Active Substance: ERLOTINIB
     Indication: BRONCHIAL CARCINOMA
     Route: 048
     Dates: start: 20140928, end: 201412

REACTIONS (3)
  - Acute respiratory failure [Recovering/Resolving]
  - Interstitial lung disease [Unknown]
  - Hypoxia [Unknown]

NARRATIVE: CASE EVENT DATE: 20141216
